FAERS Safety Report 8842035 (Version 2)
Quarter: 2012Q4

REPORT INFORMATION
  Report Type: 
  Country: CN (occurrence: CN)
  Receive Date: 20121016
  Receipt Date: 20121107
  Transmission Date: 20130627
  Serious: Yes (Other)
  Sender: FDA-Public Use
  Company Number: CN-JNJFOC-20121007649

PATIENT
  Age: 27 Year
  Sex: Male

DRUGS (3)
  1. SPORANOX [Suspect]
     Indication: ONYCHOMYCOSIS
     Route: 048
     Dates: start: 20120907, end: 20120913
  2. SPORANOX [Suspect]
     Indication: ONYCHOMYCOSIS
     Route: 048
     Dates: start: 20121007, end: 20121010
  3. CHINESE TRADITIONAL MEDICINE [Suspect]
     Indication: ALOPECIA
     Route: 065
     Dates: end: 20121009

REACTIONS (2)
  - Drug-induced liver injury [Recovering/Resolving]
  - Chromaturia [Not Recovered/Not Resolved]
